FAERS Safety Report 10987252 (Version 1)
Quarter: 2015Q1

REPORT INFORMATION
  Report Type: Spontaneous
  Country: US (occurrence: None)
  Receive Date: 20150325
  Receipt Date: 20150325
  Transmission Date: 20150721
  Serious: No
  Sender: FDA-Public Use
  Company Number: SP09056

PATIENT
  Age: 57 Year
  Sex: Male

DRUGS (13)
  1. TRUVADA [Concomitant]
     Active Substance: EMTRICITABINE\TENOFOVIR DISOPROXIL FUMARATE
  2. PRAVASTATIN [Concomitant]
     Active Substance: PRAVASTATIN\PRAVASTATIN SODIUM
  3. LISINOPRIL. [Concomitant]
     Active Substance: LISINOPRIL
  4. NORVIR [Concomitant]
     Active Substance: RITONAVIR
  5. FULYZAQ [Suspect]
     Active Substance: CROFELEMER
     Indication: DIARRHOEA
     Route: 048
     Dates: start: 20140120
  6. CIALIS [Concomitant]
     Active Substance: TADALAFIL
  7. ISENTRESS [Concomitant]
     Active Substance: RALTEGRAVIR POTASSIUM
  8. LOVAZA [Concomitant]
     Active Substance: OMEGA-3-ACID ETHYL ESTERS
  9. PREZISTA [Concomitant]
     Active Substance: DARUNAVIR ETHANOLATE
  10. ANDROGEL [Concomitant]
     Active Substance: TESTOSTERONE
  11. VALTREX [Concomitant]
     Active Substance: VALACYCLOVIR HYDROCHLORIDE
  12. IBUPROFEN. [Concomitant]
     Active Substance: IBUPROFEN
  13. JUBLIA [Concomitant]
     Active Substance: EFINACONAZOLE

REACTIONS (2)
  - Pollakiuria [None]
  - Thirst [None]
